FAERS Safety Report 10598930 (Version 1)
Quarter: 2014Q4

REPORT INFORMATION
  Report Type: Spontaneous
  Country: US (occurrence: US)
  Receive Date: 20141121
  Receipt Date: 20141121
  Transmission Date: 20150529
  Serious: Yes (Death)
  Sender: FDA-Public Use
  Company Number: US-MYLANLABS-2014M1003721

PATIENT
  Age: 27 Week
  Sex: Female

DRUGS (3)
  1. AMIODARONE HYDROCHLORIDE INJECTION, 50MG/ML [Suspect]
     Active Substance: AMIODARONE HYDROCHLORIDE
     Indication: HYDROPS FOETALIS
     Dosage: 9 MG, OVER 30 MIN
     Route: 042
     Dates: start: 20140903, end: 20140903
  2. AMIODARONE HYDROCHLORIDE INJECTION, 50MG/ML [Suspect]
     Active Substance: AMIODARONE HYDROCHLORIDE
     Indication: OFF LABEL USE
  3. ADENOSINE. [Concomitant]
     Active Substance: ADENOSINE

REACTIONS (3)
  - Off label use [None]
  - Hypotension [Fatal]
  - Bradycardia [Fatal]

NARRATIVE: CASE EVENT DATE: 20140903
